FAERS Safety Report 8261224-9 (Version None)
Quarter: 2012Q2

REPORT INFORMATION
  Report Type: 
  Country: None (occurrence: None)
  Receive Date: 20120405
  Receipt Date: 20120324
  Transmission Date: 20120825
  Serious: Yes (Hospitalization)
  Sender: FDA-Public Use
  Company Number: JP-ELI_LILLY_AND_COMPANY-JP201110000410

PATIENT
  Age: 75 Year
  Sex: Female

DRUGS (2)
  1. FORTEO [Suspect]
     Dosage: UNK
     Route: 058
     Dates: start: 20110926, end: 20120304
  2. FORTEO [Suspect]
     Dosage: UNK
     Route: 058
     Dates: start: 20120301

REACTIONS (5)
  - SPONDYLITIS [None]
  - EMBOLISM [None]
  - DECREASED APPETITE [None]
  - CONSTIPATION [None]
  - HEART RATE INCREASED [None]
